FAERS Safety Report 8151488-4 (Version None)
Quarter: 2012Q1

REPORT INFORMATION
  Report Type: 
  Country: None (occurrence: None)
  Receive Date: 20120220
  Receipt Date: 20120208
  Transmission Date: 20120608
  Serious: Yes (Hospitalization)
  Sender: FDA-Public Use
  Company Number: US-ROCHE-1040281

PATIENT

DRUGS (2)
  1. SOMATROPIN [Suspect]
     Indication: PRODUCT USED FOR UNKNOWN INDICATION
     Route: 065
  2. CEFUROXIME AXETIL [Concomitant]
     Indication: SINUSITIS
     Route: 048
     Dates: start: 20120130, end: 20120212

REACTIONS (5)
  - DEAFNESS [None]
  - DIZZINESS [None]
  - PNEUMONIA [None]
  - EAR DISCOMFORT [None]
  - SINUS CONGESTION [None]
